FAERS Safety Report 7864219-X (Version None)
Quarter: 2011Q4

REPORT INFORMATION
  Report Type: 
  Country: None (occurrence: None)
  Receive Date: 20111028
  Receipt Date: 20111024
  Transmission Date: 20120403
  Serious: Yes (Life-Threatening)
  Sender: FDA-Public Use
  Company Number: JP-PFIZER INC-2011257958

PATIENT
  Age: 77 Year
  Sex: Male
  Weight: 54.4 kg

DRUGS (5)
  1. ZOLEDRONIC ACID [Concomitant]
     Indication: PROSTATE CANCER
     Dosage: 4 MG, EVERY 4 WEEKS
     Route: 042
     Dates: start: 20110405
  2. DIPHENHYDRAMINE HYDROCHLORIDE [Concomitant]
     Indication: PROPHYLAXIS
     Dosage: 50 MG, UNK
     Route: 048
  3. FILGRASTIM [Concomitant]
     Indication: NEUTROPENIA
     Dosage: 75 UG, 1X/DAY
     Route: 058
     Dates: start: 20110719, end: 20110720
  4. TEMSIROLIMUS [Suspect]
     Indication: METASTATIC RENAL CELL CARCINOMA
     Dosage: 25 MG, WEEKLY
     Dates: start: 20110704, end: 20110711
  5. ZOLADEX [Concomitant]
     Indication: PROSTATE CANCER
     Dosage: 3.6 MG, EVERY 4 WEEKS
     Route: 058
     Dates: start: 20090707, end: 20110601

REACTIONS (1)
  - ENTEROCOLITIS [None]
